FAERS Safety Report 14364214 (Version 2)
Quarter: 2018Q1

REPORT INFORMATION
  Report Type: Report from Study
  Country: CN (occurrence: CN)
  Receive Date: 20180108
  Receipt Date: 20180323
  Transmission Date: 20180509
  Serious: Yes (Other)
  Sender: FDA-Public Use
  Company Number: CN-GILEAD-2018-0313938

PATIENT

DRUGS (2)
  1. DACLATASVIR. [Concomitant]
     Active Substance: DACLATASVIR
     Indication: ACUTE HEPATITIS C
     Dosage: 60 MG, QD
  2. SOFOSBUVIR [Suspect]
     Active Substance: SOFOSBUVIR
     Indication: ACUTE HEPATITIS C
     Dosage: 200 MG, QD
     Route: 065

REACTIONS (1)
  - Hepatitis B reactivation [Unknown]
